FAERS Safety Report 22612872 (Version 6)
Quarter: 2024Q2

REPORT INFORMATION
  Report Type: Report from Study
  Country: US (occurrence: US)
  Receive Date: 20230617
  Receipt Date: 20240416
  Transmission Date: 20240715
  Serious: Yes (Other)
  Sender: FDA-Public Use
  Company Number: US-UCBSKB_16Jun2023_2023023077_OS_FU_DOC_AORA-2023023077

PATIENT
  Sex: Female

DRUGS (4)
  1. CERTOLIZUMAB PEGOL [Suspect]
     Active Substance: CERTOLIZUMAB PEGOL
     Indication: Rheumatoid arthritis
     Dosage: 400 MILLIGRAM, EV 4 WEEKS
     Route: 058
     Dates: start: 20200101
  2. CERTOLIZUMAB PEGOL [Suspect]
     Active Substance: CERTOLIZUMAB PEGOL
     Dosage: 400 MILLIGRAM, EV 4 WEEKS
     Route: 058
     Dates: start: 202309, end: 2023
  3. CERTOLIZUMAB PEGOL [Suspect]
     Active Substance: CERTOLIZUMAB PEGOL
     Dosage: 400 MILLIGRAM, EV 4 WEEKS
     Route: 058
     Dates: start: 2023
  4. METHOTREXATE [Concomitant]
     Active Substance: METHOTREXATE
     Indication: Product used for unknown indication
     Dosage: UNK

REACTIONS (8)
  - Rheumatoid arthritis [Not Recovered/Not Resolved]
  - Paraplegia [Not Recovered/Not Resolved]
  - Memory impairment [Not Recovered/Not Resolved]
  - Oral bacterial infection [Not Recovered/Not Resolved]
  - Peripheral nerve operation [Not Recovered/Not Resolved]
  - Hypersensitivity [Recovered/Resolved]
  - Stress [Recovering/Resolving]
  - Oral lichen planus [Not Recovered/Not Resolved]

NARRATIVE: CASE EVENT DATE: 20230101
